FAERS Safety Report 10231434 (Version 1)
Quarter: 2014Q2

REPORT INFORMATION
  Report Type: Report from Study
  Country: NL (occurrence: NL)
  Receive Date: 20140611
  Receipt Date: 20140611
  Transmission Date: 20141212
  Serious: Yes (Hospitalization)
  Sender: FDA-Public Use
  Company Number: NL-BAXTER-2014BAX029067

PATIENT
  Sex: Male

DRUGS (2)
  1. GAMMAGARD S/D (SOLVENT/DETERGENT) 10,0G POUDRE ET SOLVANT POUR SOLUTIO [Suspect]
     Indication: POLYNEUROPATHY
     Route: 042
     Dates: start: 20120904
  2. GAMMAGARD S/D (SOLVENT/DETERGENT) 10,0G POUDRE ET SOLVANT POUR SOLUTIO [Suspect]
     Indication: OFF LABEL USE
     Route: 042
     Dates: start: 20140508

REACTIONS (2)
  - Wound [Unknown]
  - Off label use [None]
